FAERS Safety Report 15945823 (Version 1)
Quarter: 2019Q1

REPORT INFORMATION
  Report Type: Spontaneous
  Country: JP (occurrence: JP)
  Receive Date: 20190211
  Receipt Date: 20190211
  Transmission Date: 20190417
  Serious: Yes (Other)
  Sender: FDA-Public Use
  Company Number: JP-TEVA-2019-JP-1010483

PATIENT
  Age: 84 Year
  Sex: Male

DRUGS (1)
  1. TERBINAFINE. [Suspect]
     Active Substance: TERBINAFINE
     Indication: SKIN CANDIDA
     Route: 048

REACTIONS (2)
  - Acute generalised exanthematous pustulosis [Recovering/Resolving]
  - Pustular psoriasis [Recovering/Resolving]
